FAERS Safety Report 8865586 (Version 1)
Quarter: 2012Q4

REPORT INFORMATION
  Report Type: 
  Country: US (occurrence: US)
  Receive Date: 20121024
  Receipt Date: 20121024
  Transmission Date: 20130627
  Serious: No
  Sender: FDA-Public Use
  Company Number: US-AMGEN-USASP2012003943

PATIENT
  Age: 58 Year
  Sex: Male

DRUGS (6)
  1. ENBREL [Suspect]
     Indication: PRODUCT USED FOR UNKNOWN INDICATION
     Dosage: 50 mg, 2 times/wk
     Route: 058
  2. AMLODIPINE [Concomitant]
     Dosage: 2.5 mg, UNK
  3. TRIAMTEREEN/HYDROCHLOOTTHIAZIDE [Concomitant]
  4. ALLOPURINOL [Concomitant]
     Dosage: 100 mg, UNK
  5. POTASSIUM [Concomitant]
     Dosage: 25 mEq, UNK
  6. METFORMIN [Concomitant]
     Dosage: 1000 mg, UNK

REACTIONS (1)
  - Sinusitis [Unknown]
